FAERS Safety Report 9068264 (Version 2)
Quarter: 2013Q1

REPORT INFORMATION
  Report Type: Spontaneous
  Country: US (occurrence: US)
  Receive Date: 20130206
  Receipt Date: 20130308
  Transmission Date: 20140127
  Serious: Yes (Other)
  Sender: FDA-Public Use
  Company Number: US-AMGEN-USASP2013006550

PATIENT
  Age: 56 Year
  Sex: Female

DRUGS (5)
  1. PROLIA [Suspect]
     Indication: OSTEOPOROSIS
     Dosage: UNK UNK, Q6MO
     Dates: start: 201011
  2. CYMBALTA [Concomitant]
  3. CALCIUM [Concomitant]
     Dosage: UNK UNK, QD
  4. VITAMIN D /00107901/ [Concomitant]
     Dosage: 50000 UNIT, QD
  5. ASPIRIN [Concomitant]

REACTIONS (19)
  - Exostosis [Unknown]
  - Headache [Unknown]
  - Musculoskeletal pain [Unknown]
  - Arthropathy [Unknown]
  - Musculoskeletal discomfort [Unknown]
  - Facial pain [Unknown]
  - Pain in jaw [Unknown]
  - Ear pain [Unknown]
  - Muscular weakness [Unknown]
  - Dyskinesia [Unknown]
  - Nausea [Unknown]
  - Throat tightness [Unknown]
  - Dysphagia [Unknown]
  - Jaw disorder [Unknown]
  - Pain [Unknown]
  - Back pain [Unknown]
  - Myalgia [Unknown]
  - Bone pain [Unknown]
  - Liver disorder [Unknown]
